FAERS Safety Report 16997808 (Version 1)
Quarter: 2019Q4

REPORT INFORMATION
  Report Type: Spontaneous
  Country: US (occurrence: US)
  Receive Date: 20190925
  Receipt Date: 20190925
  Transmission Date: 20200122
  Serious: No
  Sender: FDA-Public Use
  Company Number: None

PATIENT
  Age: 56 Year
  Sex: Female

DRUGS (1)
  1. MAVYRET [Suspect]
     Active Substance: GLECAPREVIR\PIBRENTASVIR
     Indication: HEPATITIS C
     Dosage: ?          OTHER DOSE:100MG/40MG - 3 TAB;?
     Route: 048
     Dates: start: 201909

REACTIONS (3)
  - Insomnia [None]
  - Headache [None]
  - Cholelithiasis [None]

NARRATIVE: CASE EVENT DATE: 20190925
